FAERS Safety Report 16812754 (Version 1)
Quarter: 2019Q3

REPORT INFORMATION
  Report Type: Spontaneous
  Country: CH (occurrence: CH)
  Receive Date: 20190916
  Receipt Date: 20190916
  Transmission Date: 20191005
  Serious: Yes (Other)
  Sender: FDA-Public Use
  Company Number: CH-ALLERGAN-1937588US

PATIENT
  Sex: Female

DRUGS (10)
  1. CITALOPRAM HYDROBROMIDE - BP [Suspect]
     Active Substance: CITALOPRAM HYDROBROMIDE
     Indication: PRODUCT USED FOR UNKNOWN INDICATION
     Dosage: 60 MG, QD
     Route: 065
  2. BUSPIRONE [Suspect]
     Active Substance: BUSPIRONE HYDROCHLORIDE
     Indication: PANIC DISORDER
     Dosage: UNK
     Route: 065
  3. ETILEFRINE [Suspect]
     Active Substance: ETILEFRINE
     Indication: MIGRAINE
  4. DIHYDERGOT (DIHYDROERGOTAMINE MESILATE) [Suspect]
     Active Substance: DIHYDROERGOTAMINE MESYLATE
     Indication: MIGRAINE
  5. ETILEFRINE [Suspect]
     Active Substance: ETILEFRINE
     Indication: PANIC DISORDER
     Dosage: UNK
     Route: 065
  6. CITALOPRAM HYDROBROMIDE - BP [Suspect]
     Active Substance: CITALOPRAM HYDROBROMIDE
     Dosage: 40 MG, QD
     Route: 065
  7. BUSPIRONE [Suspect]
     Active Substance: BUSPIRONE HYDROCHLORIDE
     Indication: MIGRAINE
  8. THIORIDAZINE [Suspect]
     Active Substance: THIORIDAZINE
     Indication: PANIC DISORDER
     Dosage: UNK
     Route: 065
  9. DIHYDERGOT (DIHYDROERGOTAMINE MESILATE) [Suspect]
     Active Substance: DIHYDROERGOTAMINE MESYLATE
     Indication: PANIC DISORDER
     Dosage: UNK
     Route: 065
  10. THIORIDAZINE [Suspect]
     Active Substance: THIORIDAZINE
     Indication: MIGRAINE

REACTIONS (3)
  - Prescribed overdose [Unknown]
  - Pregnancy [Unknown]
  - Abortion induced [Unknown]
